FAERS Safety Report 4796815-0 (Version None)
Quarter: 2005Q3

REPORT INFORMATION
  Report Type: 
  Country: None (occurrence: None)
  Receive Date: 20050916
  Receipt Date: 20050701
  Transmission Date: 20060218
  Serious: Yes (Other)
  Sender: FDA-Public Use
  Company Number: US-JNJFOC-20050502918

PATIENT
  Age: 58 Year
  Sex: Male

DRUGS (6)
  1. TOPAMAX [Suspect]
     Indication: HEADACHE
     Dosage: 35 MG, 2 IN 1 DAY, ORAL
     Route: 048
     Dates: start: 20050506, end: 20050509
  2. TYLENOL (ACETAMINOPHEN) [Concomitant]
  3. NAPROXEN [Concomitant]
  4. ACETYLSALICYLIC ACID SRT [Concomitant]
  5. AMBIEN [Concomitant]
  6. DOXYCYCLINE [Concomitant]

REACTIONS (4)
  - CONFUSIONAL STATE [None]
  - DISORIENTATION [None]
  - HEADACHE [None]
  - SPEECH DISORDER [None]
